FAERS Safety Report 9365316 (Version 1)
Quarter: 2013Q2

REPORT INFORMATION
  Report Type: Spontaneous
  Country: CN (occurrence: CN)
  Receive Date: 20130625
  Receipt Date: 20130625
  Transmission Date: 20140414
  Serious: Yes (Hospitalization)
  Sender: FDA-Public Use
  Company Number: CN-B.I. PHARMACEUTICALS,INC./RIDGEFIELD-2013-BI-17706CS

PATIENT
  Age: 69 Year
  Sex: Male
  Weight: 52 kg

DRUGS (1)
  1. IPRATROPIUMBROMID [Suspect]
     Indication: ASTHMA
     Dosage: 500 MCG
     Route: 055
     Dates: start: 20120210, end: 20120212

REACTIONS (2)
  - Tachypnoea [Recovered/Resolved]
  - Rash [Recovered/Resolved]
